FAERS Safety Report 24279279 (Version 1)
Quarter: 2024Q3

REPORT INFORMATION
  Report Type: Spontaneous
  Country: US (occurrence: US)
  Receive Date: 20240903
  Receipt Date: 20240903
  Transmission Date: 20241017
  Serious: No
  Sender: PFIZER
  Company Number: US-PFIZER INC-202400248012

PATIENT
  Age: 64 Year
  Sex: Male
  Weight: 65.77 kg

DRUGS (6)
  1. PANTOPRAZOLE [Suspect]
     Active Substance: PANTOPRAZOLE
     Dosage: 40 MG, 2X/DAY
  2. ALGELDRATE\SODIUM ALGINATE [Suspect]
     Active Substance: ALGELDRATE\SODIUM ALGINATE
     Dosage: UNK
  3. CALCIUM CARBONATE [Suspect]
     Active Substance: CALCIUM CARBONATE
     Dosage: UNK
  4. GRANISETRON [Suspect]
     Active Substance: GRANISETRON
     Dosage: UNK
  5. LORAZEPAM [Concomitant]
     Active Substance: LORAZEPAM
     Indication: Anxiety
     Dosage: 0.125 MG, 1X/DAY (ONCE AT NIGHT)
  6. PREDNISONE [Concomitant]
     Active Substance: PREDNISONE
     Dosage: 5 MG

REACTIONS (1)
  - Drug ineffective [Unknown]
